FAERS Safety Report 20845216 (Version 1)
Quarter: 2022Q2

REPORT INFORMATION
  Report Type: Spontaneous
  Country: US (occurrence: None)
  Receive Date: 20220518
  Receipt Date: 20220518
  Transmission Date: 20220720
  Serious: No
  Sender: FDA-Public Use
  Company Number: None

PATIENT
  Age: 47 Year
  Sex: Female
  Weight: 90 kg

DRUGS (1)
  1. RITONAVIR [Suspect]
     Active Substance: RITONAVIR
     Dosage: FREQUENCY : TWICE A DAY;?
     Route: 048
     Dates: start: 20220514, end: 20220514

REACTIONS (2)
  - Product taste abnormal [None]
  - Refusal of treatment by patient [None]

NARRATIVE: CASE EVENT DATE: 20220514
